FAERS Safety Report 23802732 (Version 1)
Quarter: 2024Q2

REPORT INFORMATION
  Report Type: Report from Study
  Country: US (occurrence: US)
  Receive Date: 20240501
  Receipt Date: 20240501
  Transmission Date: 20240716
  Serious: Yes (Congenital Anomaly, Other)
  Sender: FDA-Public Use
  Company Number: US-GSK-US2024GSK053990

PATIENT

DRUGS (22)
  1. MEPOLIZUMAB [Suspect]
     Active Substance: MEPOLIZUMAB
     Indication: Asthma
     Dosage: 1 DF, MO
     Route: 064
     Dates: start: 20200315, end: 20210204
  2. ALBUTEROL SULFATE [Concomitant]
     Active Substance: ALBUTEROL SULFATE
     Indication: Asthma
     Dosage: UNK, QD
     Route: 055
     Dates: start: 20200831, end: 20200831
  3. DAYQUIL COUGH [Concomitant]
     Indication: Product used for unknown indication
     Dosage: UNK 1 TABLESPOON
     Route: 048
     Dates: start: 20200710, end: 20200710
  4. DIETARY SUPPLEMENT [Concomitant]
     Active Substance: DIETARY SUPPLEMENT
     Indication: Product used for unknown indication
     Dosage: 1 DF, QD
     Route: 048
     Dates: start: 20201204, end: 20210204
  5. Dulcolax [Concomitant]
     Indication: Constipation
     Dosage: 2 DF, QD 2 PILLS
     Route: 048
     Dates: start: 20201227, end: 20201227
  6. INFLUENZA VIRUS VACCINE [Concomitant]
     Active Substance: INFLUENZA VIRUS VACCINE
     Indication: Prophylaxis
     Dosage: 1 DF
     Route: 064
     Dates: start: 20201015
  7. MAGNESIUM [Concomitant]
     Active Substance: MAGNESIUM
     Indication: Headache
     Dosage: 400 MG 8 TOTAL
     Route: 048
     Dates: start: 20200503, end: 20200922
  8. MAGNESIUM [Concomitant]
     Active Substance: MAGNESIUM
     Dosage: 400 MG 4 TOTAL
     Route: 048
     Dates: start: 20201001, end: 20201218
  9. MAGNESIUM [Concomitant]
     Active Substance: MAGNESIUM
     Dosage: 400 MG, QD
     Route: 048
     Dates: start: 20201226, end: 20201226
  10. SINGULAIR [Concomitant]
     Active Substance: MONTELUKAST SODIUM
     Indication: Asthma
     Dosage: 10 MG, QD
     Dates: start: 20191115, end: 20210204
  11. SYMBICORT [Concomitant]
     Active Substance: BUDESONIDE\FORMOTEROL FUMARATE DIHYDRATE
     Indication: Asthma
     Dosage: 2 PUFF(S) 6 TOTAL
     Route: 055
     Dates: start: 20191115, end: 20200702
  12. TETANUS TOXOID, REDUCED DIPHTHERIA TOXOID AND ACELLULAR PERTUSSIS VACC [Concomitant]
     Active Substance: TETANUS TOXOID, REDUCED DIPHTHERIA TOXOID AND ACELLULAR PERTUSSIS VACCINE ADSORBED, TDAP
     Indication: Prophylaxis
     Dosage: 1 DF, QD
     Route: 064
     Dates: start: 20201125, end: 20201125
  13. TIROSINT [Concomitant]
     Active Substance: LEVOTHYROXINE SODIUM
     Indication: Autoimmune thyroiditis
     Dosage: 88 UG, QD
     Route: 048
     Dates: start: 20200503, end: 20210204
  14. TYLENOL COLD + FLU HOT MEDICATION [Concomitant]
     Indication: Sinusitis
     Dosage: 2 DF, QD 2 TABLESPOON
     Route: 048
     Dates: start: 20210121, end: 20210121
  15. TYLENOL SINUS SEVERE CONGESTION [Concomitant]
     Indication: Paranasal sinus discomfort
     Dosage: 2 DF, QD 2 PILL
     Route: 048
     Dates: start: 20201207, end: 20201210
  16. TYLENOL SINUS SEVERE CONGESTION [Concomitant]
     Indication: Headache
  17. TYLENOL SINUS SEVERE CONGESTION [Concomitant]
     Indication: Nasal congestion
  18. VITAMIN B6 [Concomitant]
     Active Substance: PYRIDOXINE HYDROCHLORIDE
     Indication: Morning sickness
     Dosage: 100 MG 3 TOTAL
     Route: 048
     Dates: start: 20200615, end: 20200715
  19. VITAMIN B6 [Concomitant]
     Active Substance: PYRIDOXINE HYDROCHLORIDE
     Indication: Morning sickness
  20. ZITHROMAX [Concomitant]
     Active Substance: AZITHROMYCIN DIHYDRATE
     Indication: Sinusitis
     Dosage: 100 MG 3 TOTAL
     Route: 048
     Dates: start: 20200615, end: 20200705
  21. ZITHROMAX [Concomitant]
     Active Substance: AZITHROMYCIN DIHYDRATE
     Dosage: 2 DF, QD 2 PILL
     Route: 048
     Dates: start: 20210121, end: 20210121
  22. ZITHROMAX [Concomitant]
     Active Substance: AZITHROMYCIN DIHYDRATE
     Dosage: 1 DF, QD 1 PILL
     Route: 048
     Dates: start: 20210122, end: 20210125

REACTIONS (2)
  - Penoscrotal fusion [Unknown]
  - Foetal exposure during pregnancy [Unknown]

NARRATIVE: CASE EVENT DATE: 20200517
